FAERS Safety Report 18515481 (Version 2)
Quarter: 2021Q1

REPORT INFORMATION
  Report Type: Spontaneous
  Country: US (occurrence: US)
  Receive Date: 20201118
  Receipt Date: 20210308
  Transmission Date: 20210419
  Serious: Yes (Other)
  Sender: FDA-Public Use
  Company Number: US-CIPLA LTD.-2020US08749

PATIENT

DRUGS (3)
  1. LEUCOVORIN [FOLINIC ACID] [Concomitant]
     Active Substance: LEUCOVORIN
     Indication: COLORECTAL CANCER
     Dosage: UNK
     Route: 065
  2. OXALIPLATIN. [Suspect]
     Active Substance: OXALIPLATIN
     Indication: COLORECTAL CANCER
     Dosage: UNK
     Route: 065
  3. FLUOROURACIL. [Concomitant]
     Active Substance: FLUOROURACIL
     Indication: COLORECTAL CANCER
     Dosage: UNK
     Route: 065

REACTIONS (11)
  - Nonalcoholic fatty liver disease [Unknown]
  - Hepatic cirrhosis [Unknown]
  - Portal vein thrombosis [Unknown]
  - Portal hypertension [Unknown]
  - Oesophageal varices haemorrhage [Unknown]
  - Hepatic mass [Unknown]
  - Angiosclerosis [Unknown]
  - Venoocclusive liver disease [Unknown]
  - Drug-induced liver injury [Unknown]
  - Liver disorder [Unknown]
  - Nodular regenerative hyperplasia [Unknown]
